FAERS Safety Report 6525816-7 (Version None)
Quarter: 2010Q1

REPORT INFORMATION
  Report Type: 
  Country: None (occurrence: None)
  Receive Date: 20100104
  Receipt Date: 20091225
  Transmission Date: 20100710
  Serious: Yes (Hospitalization)
  Sender: FDA-Public Use
  Company Number: B0590132A

PATIENT
  Sex: Male

DRUGS (11)
  1. ZOVIRAX [Suspect]
     Indication: DRUG USE FOR UNKNOWN INDICATION
     Dosage: 800MG THREE TIMES PER DAY
     Route: 048
     Dates: start: 20090820, end: 20090823
  2. ASPIRIN [Concomitant]
     Dosage: 100MG PER DAY
     Route: 048
     Dates: start: 20080301
  3. ARTIST [Concomitant]
     Dosage: 10MG PER DAY
     Route: 048
     Dates: start: 20030101
  4. OMEPRAZOLE [Concomitant]
     Dosage: 10MG PER DAY
     Route: 048
     Dates: start: 20090817
  5. ALLOPURINOL [Concomitant]
     Dosage: 100MG PER DAY
     Route: 048
     Dates: start: 20030101
  6. AMOBANTES [Concomitant]
     Dosage: 7.5MG PER DAY
     Route: 048
     Dates: start: 20030101
  7. RENAGEL [Concomitant]
     Dosage: 5250MG PER DAY
     Route: 048
     Dates: start: 20040301
  8. CINACALCET HYDROCHLORIDE [Concomitant]
     Dosage: 50MG PER DAY
     Route: 048
     Dates: start: 20080701
  9. NEOPHAGEN C [Concomitant]
     Dosage: 60ML PER DAY
     Route: 042
     Dates: start: 20030201
  10. OXAROL [Concomitant]
     Dosage: 15MCG PER DAY
     Route: 042
     Dates: start: 20030201
  11. EPOGIN INJ [Concomitant]
     Dates: start: 20080801

REACTIONS (5)
  - ABNORMAL BEHAVIOUR [None]
  - DYSARTHRIA [None]
  - DYSPHONIA [None]
  - FEELING ABNORMAL [None]
  - RESTLESSNESS [None]
